FAERS Safety Report 21327313 (Version 1)
Quarter: 2022Q3

REPORT INFORMATION
  Report Type: Spontaneous
  Country: US (occurrence: None)
  Receive Date: 20220912
  Receipt Date: 20220912
  Transmission Date: 20221027
  Serious: Yes (Hospitalization)
  Sender: FDA-Public Use
  Company Number: None

PATIENT
  Age: 76 Year
  Sex: Female

DRUGS (1)
  1. OPSUMIT [Suspect]
     Active Substance: MACITENTAN
     Indication: Pulmonary arterial hypertension
     Dosage: FREQUENCY : DAILY;?
     Route: 048
     Dates: start: 20180308

REACTIONS (4)
  - Dysarthria [None]
  - Hypoaesthesia [None]
  - Cerebral haemorrhage [None]
  - Cerebral amyloid angiopathy [None]

NARRATIVE: CASE EVENT DATE: 20220815
